FAERS Safety Report 8307499 (Version 2)
Quarter: 2013Q3

REPORT INFORMATION
  Report Type: Spontaneous
  Country: CA (occurrence: CA)
  Receive Date: 20111222
  Receipt Date: 20130904
  Transmission Date: 20140515
  Serious: Yes (Other)
  Sender: FDA-Public Use
  Company Number: CA-ROCHE-1023989

PATIENT
  Age: 61 Year
  Sex: Male

DRUGS (3)
  1. XELODA [Suspect]
     Indication: RECTAL CANCER
     Dosage: FREQUENCY: QAM
     Route: 048
     Dates: start: 20111016
  2. XELODA [Suspect]
     Dosage: QPM
     Route: 048
     Dates: end: 20111218
  3. XELODA [Suspect]
     Route: 048
     Dates: start: 20111218

REACTIONS (2)
  - Palmar-plantar erythrodysaesthesia syndrome [Not Recovered/Not Resolved]
  - Penile erythema [Not Recovered/Not Resolved]
